FAERS Safety Report 21681285 (Version 2)
Quarter: 2022Q4

REPORT INFORMATION
  Report Type: Spontaneous
  Country: US (occurrence: US)
  Receive Date: 20221205
  Receipt Date: 20221221
  Transmission Date: 20230113
  Serious: Yes (Life-Threatening, Hospitalization)
  Sender: FDA-Public Use
  Company Number: US-Vifor (International) Inc.-VIT-2022-08357

PATIENT
  Age: 65 Year
  Sex: Female
  Weight: 63 kg

DRUGS (7)
  1. MIRCERA [Suspect]
     Active Substance: METHOXY POLYETHYLENE GLYCOL-EPOETIN BETA
     Indication: Nephrogenic anaemia
     Route: 042
     Dates: start: 20221024, end: 20221120
  2. VENOFER [Suspect]
     Active Substance: IRON SUCROSE
     Indication: Iron deficiency anaemia
     Dosage: IVP IN VENOUS PORT.
     Route: 042
     Dates: start: 20220908
  3. VENOFER [Suspect]
     Active Substance: IRON SUCROSE
     Dosage: 15TH DOSE
     Route: 042
     Dates: start: 20221120
  4. ERGOCALCIFEROL [Concomitant]
     Active Substance: ERGOCALCIFEROL
     Indication: Vitamin D deficiency
     Route: 048
     Dates: start: 20220930
  5. CALCITRIOL [Concomitant]
     Active Substance: CALCITRIOL
     Indication: Blood parathyroid hormone abnormal
     Route: 048
     Dates: start: 20220928
  6. HEPARIN [Concomitant]
     Active Substance: HEPARIN SODIUM
     Indication: Premedication
     Dosage: 2000 UNITS
     Route: 042
     Dates: start: 20220923
  7. HEPARIN [Concomitant]
     Active Substance: HEPARIN SODIUM
     Indication: Venous thrombosis
     Dosage: 2000 UNITS
     Route: 042
     Dates: start: 20220923

REACTIONS (4)
  - Snoring [Recovered/Resolved]
  - Unresponsive to stimuli [Recovered/Resolved]
  - General physical condition abnormal [Recovered/Resolved]
  - Pulse absent [Recovered/Resolved]

NARRATIVE: CASE EVENT DATE: 20221120
